FAERS Safety Report 24456416 (Version 2)
Quarter: 2024Q4

REPORT INFORMATION
  Report Type: Report from Study
  Country: US (occurrence: US)
  Receive Date: 20241017
  Receipt Date: 20241018
  Transmission Date: 20250115
  Serious: No
  Sender: ROCHE
  Company Number: US-ROCHE-3503715

PATIENT
  Age: 63 Year
  Sex: Female

DRUGS (34)
  1. RITUXAN [Suspect]
     Active Substance: RITUXIMAB
     Indication: Dermatomyositis
     Route: 041
  2. RITUXAN [Suspect]
     Active Substance: RITUXIMAB
     Indication: Myositis
  3. CELLCEPT [Suspect]
     Active Substance: MYCOPHENOLATE MOFETIL
     Indication: Product used for unknown indication
     Dosage: 3 TABLET BY MY MOUTH TWICE A DAY (180 TABLET)
     Route: 048
     Dates: start: 20220315
  4. CELLCEPT [Suspect]
     Active Substance: MYCOPHENOLATE MOFETIL
     Dosage: 3 TABLET BY MY MOUTH TWICE A DAY (180 TABLET)
     Route: 048
     Dates: start: 20231009
  5. ALBUTEROL [Concomitant]
     Active Substance: ALBUTEROL
  6. ALENDRONATE [Concomitant]
     Active Substance: ALENDRONATE SODIUM
  7. AMLODIPINE [Concomitant]
     Active Substance: AMLODIPINE BESYLATE
  8. BACLOFEN [Concomitant]
     Active Substance: BACLOFEN
  9. BISACODYL [Concomitant]
     Active Substance: BISACODYL
  10. CLOBETASOL [Concomitant]
     Active Substance: CLOBETASOL
  11. COLLAGENASE [Concomitant]
     Active Substance: COLLAGENASE CLOSTRIDIUM HISTOLYTICUM
  12. DESONIDE [Concomitant]
     Active Substance: DESONIDE
  13. DULAGLUTIDE [Concomitant]
     Active Substance: DULAGLUTIDE
  14. FUROSEMIDE [Concomitant]
     Active Substance: FUROSEMIDE
  15. GABAPENTIN [Concomitant]
     Active Substance: GABAPENTIN
  16. HYDROXYZINE [Concomitant]
     Active Substance: HYDROXYZINE HYDROCHLORIDE
  17. IBUPROFEN [Concomitant]
     Active Substance: IBUPROFEN
  18. INSULIN ASPART [Concomitant]
     Active Substance: INSULIN ASPART
  19. INSULIN GLARGINE [Concomitant]
     Active Substance: INSULIN GLARGINE
  20. LORAZEPAM [Concomitant]
     Active Substance: LORAZEPAM
  21. MELOXICAM [Concomitant]
     Active Substance: MELOXICAM
  22. METFORMIN [Concomitant]
     Active Substance: METFORMIN HYDROCHLORIDE
  23. MOMETASONE FUROATE [Concomitant]
     Active Substance: MOMETASONE FUROATE
  24. NICOTINE [Concomitant]
     Active Substance: NICOTINE
  25. NITROGLYCERIN [Concomitant]
     Active Substance: NITROGLYCERIN
  26. OXYCODONE AND ACETAMINOPHEN [Concomitant]
     Active Substance: ACETAMINOPHEN\OXYCODONE HYDROCHLORIDE
  27. PANTOPRAZOLE [Concomitant]
     Active Substance: PANTOPRAZOLE
  28. POLYETHYLENE GLYCOL ELECTROLYTES [Concomitant]
  29. POTASSIUM CHLORIDE [Concomitant]
     Active Substance: POTASSIUM CHLORIDE
  30. PREDNISONE [Concomitant]
     Active Substance: PREDNISONE
  31. SULFAMETHOXAZOLE\TRIMETHOPRIM [Concomitant]
     Active Substance: SULFAMETHOXAZOLE\TRIMETHOPRIM
  32. TRIAMCINOLONE [Concomitant]
     Active Substance: TRIAMCINOLONE
  33. VALACYCLOVIR [Concomitant]
     Active Substance: VALACYCLOVIR HYDROCHLORIDE
  34. VALSARTAN [Concomitant]
     Active Substance: VALSARTAN

REACTIONS (2)
  - Off label use [Unknown]
  - No adverse event [Unknown]
